FAERS Safety Report 17719652 (Version 2)
Quarter: 2020Q3

REPORT INFORMATION
  Report Type: Spontaneous
  Country: US (occurrence: US)
  Receive Date: 20200428
  Receipt Date: 20200701
  Transmission Date: 20201102
  Serious: Yes (Hospitalization, Other)
  Sender: FDA-Public Use
  Company Number: US-NAPPMUNDI-USA-2020-0151739

PATIENT
  Sex: Female

DRUGS (6)
  1. VICODIN [Suspect]
     Active Substance: ACETAMINOPHEN\HYDROCODONE BITARTRATE
     Indication: PAIN
     Dosage: UNK
     Route: 065
     Dates: end: 2019
  2. SOMA [Suspect]
     Active Substance: CARISOPRODOL
     Indication: PAIN
     Dosage: UNK
     Route: 065
     Dates: end: 2019
  3. OXYCODONE HYDROCHLORIDE (SIMILAR TO NDA 22?272) [Suspect]
     Active Substance: OXYCODONE HYDROCHLORIDE
     Indication: PAIN
     Dosage: UNK
     Route: 048
     Dates: end: 2019
  4. OXYCONTIN [Suspect]
     Active Substance: OXYCODONE HYDROCHLORIDE
     Indication: PRODUCT USED FOR UNKNOWN INDICATION
     Route: 048
  5. PERCOCET [Suspect]
     Active Substance: ACETAMINOPHEN\OXYCODONE HYDROCHLORIDE
     Indication: PAIN
     Dosage: UNK
     Route: 065
     Dates: end: 2019
  6. IBUPROFEN. [Suspect]
     Active Substance: IBUPROFEN
     Indication: PAIN
     Dosage: 400 MG, UNK
     Route: 048

REACTIONS (7)
  - Mental status changes [Recovered/Resolved]
  - Diarrhoea [Unknown]
  - Gastritis erosive [Unknown]
  - Drug withdrawal syndrome [Unknown]
  - Drug abuse [Recovered/Resolved]
  - Gastric ulcer haemorrhage [Unknown]
  - Drug dependence [Recovered/Resolved]
